FAERS Safety Report 7207364-4 (Version None)
Quarter: 2011Q1

REPORT INFORMATION
  Report Type: 
  Country: None (occurrence: None)
  Receive Date: 20110103
  Receipt Date: 20101229
  Transmission Date: 20110831
  Serious: Yes (Hospitalization)
  Sender: FDA-Public Use
  Company Number: FR-TEVA-256067ISR

PATIENT
  Sex: Male

DRUGS (14)
  1. ROPINIROLE HYDROCHLORIDE [Concomitant]
  2. FENOFIBRATE [Concomitant]
  3. MADOPAR (BENSERAZIDE-LEVODOPA) [Concomitant]
  4. FLUINDIONE [Concomitant]
  5. AZILECT [Suspect]
     Indication: PARKINSON'S DISEASE
     Route: 048
     Dates: start: 20100614, end: 20100729
  6. ROPINIROLE HYDROCHLORIDE [Concomitant]
  7. SPIRONOLACTONE [Concomitant]
  8. DIOSMINE [Concomitant]
  9. MADOPAR (BENSERAZIDE-LEVODOPA) [Concomitant]
  10. FUROSEMIDE [Concomitant]
  11. PRISTINAMYCIN [Suspect]
     Indication: WOUND
     Route: 048
     Dates: start: 20100719, end: 20100726
  12. ZOLPIDEM [Concomitant]
  13. FUSIDIC ACID [Suspect]
     Indication: ERYTHRODERMIC PSORIASIS
     Route: 048
     Dates: start: 20100812, end: 20100816
  14. MADOPAR (BENSERAZIDE-LEVODOPA) [Concomitant]

REACTIONS (8)
  - ECZEMA [None]
  - DERMATITIS EXFOLIATIVE [None]
  - TOXIC SKIN ERUPTION [None]
  - GENERALISED OEDEMA [None]
  - ACUTE GENERALISED EXANTHEMATOUS PUSTULOSIS [None]
  - ERYSIPELAS [None]
  - RASH PUSTULAR [None]
  - MYCOSIS FUNGOIDES [None]
